FAERS Safety Report 11581491 (Version 1)
Quarter: 2015Q4

REPORT INFORMATION
  Report Type: Spontaneous
  Country: US (occurrence: US)
  Receive Date: 20151001
  Receipt Date: 20151001
  Transmission Date: 20160304
  Serious: No
  Sender: FDA-Public Use
  Company Number: US-ROCHE-694142

PATIENT
  Sex: Female

DRUGS (4)
  1. PEGASYS [Suspect]
     Active Substance: PEGINTERFERON ALFA-2A
     Dosage: FORM: PRE FILLED SYRINGE (PFS)
     Route: 065
     Dates: start: 20091201, end: 20100224
  2. COPEGUS [Suspect]
     Active Substance: RIBAVIRIN
     Dosage: IN DIVIDED DOSES
     Route: 048
     Dates: start: 20091201, end: 20100224
  3. PEGASYS [Suspect]
     Active Substance: PEGINTERFERON ALFA-2A
     Indication: HEPATITIS C
     Dosage: FORM: PRE FILLED SYRINGE (PFS)
     Route: 065
     Dates: start: 20090211, end: 20090811
  4. COPEGUS [Suspect]
     Active Substance: RIBAVIRIN
     Indication: HEPATITIS C
     Dosage: IN DIVIDED DOSES
     Route: 048
     Dates: start: 20090211, end: 20090811

REACTIONS (2)
  - Hepatic fibrosis [Unknown]
  - Therapeutic response delayed [Unknown]
